FAERS Safety Report 7444586-1 (Version None)
Quarter: 2011Q2

REPORT INFORMATION
  Report Type: 
  Country: None (occurrence: None)
  Receive Date: 20110429
  Receipt Date: 20110415
  Transmission Date: 20111010
  Serious: Yes (Hospitalization)
  Sender: FDA-Public Use
  Company Number: JP-JNJFOC-20110410727

PATIENT
  Sex: Female
  Weight: 56 kg

DRUGS (14)
  1. VELCADE [Suspect]
     Indication: MULTIPLE MYELOMA
     Route: 042
  2. ITRACONAZOLE [Suspect]
     Indication: INFECTION PROPHYLAXIS
     Route: 048
  3. SOLU-CORTEF [Concomitant]
     Indication: MULTIPLE MYELOMA
     Route: 042
  4. ACICLOVIR [Concomitant]
     Indication: INFECTION PROPHYLAXIS
     Route: 048
  5. NEUTROGIN [Concomitant]
     Indication: NEUTROPHIL COUNT DECREASED
     Route: 058
  6. NEUTROGIN [Concomitant]
     Route: 058
  7. TAKEPRON [Concomitant]
     Indication: PROPHYLAXIS AGAINST GASTROINTESTINAL ULCER
     Route: 048
  8. ROHYPNOL [Concomitant]
     Indication: INSOMNIA
     Route: 048
  9. CRAVIT [Concomitant]
     Indication: INFECTION PROPHYLAXIS
     Route: 048
  10. BAKTAR [Concomitant]
     Indication: INFECTION PROPHYLAXIS
     Route: 048
  11. DORAL [Concomitant]
     Indication: INSOMNIA
     Route: 048
  12. DECADRON [Concomitant]
     Indication: MULTIPLE MYELOMA
     Route: 042
  13. RIVOTRIL [Concomitant]
     Indication: INSOMNIA
     Route: 048
  14. ADONA [Concomitant]
     Indication: HAEMORRHAGIC DIATHESIS
     Route: 048

REACTIONS (3)
  - PNEUMONIA ASPIRATION [None]
  - HYPOXIA [None]
  - RASH [None]
